FAERS Safety Report 4717288-X (Version None)
Quarter: 2005Q3

REPORT INFORMATION
  Report Type: 
  Country: None (occurrence: None)
  Receive Date: 20050715
  Receipt Date: 20050704
  Transmission Date: 20060218
  Serious: Yes (Other)
  Sender: FDA-Public Use
  Company Number: 2005062154

PATIENT
  Age: 27 Year
  Sex: Female

DRUGS (1)
  1. BEXTRA [Suspect]
     Indication: PROCEDURAL PAIN
     Dosage: (1 IN 1 D), ORAL
     Route: 048
     Dates: start: 20040314

REACTIONS (6)
  - CONDITION AGGRAVATED [None]
  - DERMATITIS ALLERGIC [None]
  - DRUG EXPOSURE DURING PREGNANCY [None]
  - GASTRIC DISORDER [None]
  - PREGNANCY [None]
  - THERAPY NON-RESPONDER [None]
